FAERS Safety Report 10719714 (Version 2)
Quarter: 2015Q1

REPORT INFORMATION
  Report Type: Report from Study
  Country: BE (occurrence: BE)
  Receive Date: 20150119
  Receipt Date: 20150127
  Transmission Date: 20150721
  Serious: Yes (Hospitalization)
  Sender: FDA-Public Use
  Company Number: BE-BIOGENIDEC-2015BI003369

PATIENT
  Age: 52 Year
  Sex: Male

DRUGS (7)
  1. PANTOMED [Concomitant]
     Active Substance: DEXPANTHENOL
  2. RIVOTRIL [Concomitant]
     Active Substance: CLONAZEPAM
  3. ISOTEN [Concomitant]
  4. CRESTOR [Concomitant]
     Active Substance: ROSUVASTATIN CALCIUM
  5. CARDIOASPIRIN [Concomitant]
     Active Substance: ASPIRIN
  6. BRILIQUE [Concomitant]
     Active Substance: TICAGRELOR
  7. AVONEX [Suspect]
     Active Substance: INTERFERON BETA-1A
     Indication: PRODUCT USED FOR UNKNOWN INDICATION
     Route: 030
     Dates: start: 19980101

REACTIONS (2)
  - Infarction [Unknown]
  - Haematoma [Unknown]

NARRATIVE: CASE EVENT DATE: 201408
